FAERS Safety Report 6840114-X (Version None)
Quarter: 2010Q3

REPORT INFORMATION
  Report Type: 
  Country: None (occurrence: None)
  Receive Date: 20100713
  Receipt Date: 20100713
  Transmission Date: 20110219
  Serious: No
  Sender: FDA-Public Use
  Company Number: None

PATIENT
  Sex: Male

DRUGS (1)
  1. FLOMAX [Suspect]
     Dosage: 1 PO QD 30 MIN } MEAL ORAL
     Route: 048

REACTIONS (2)
  - DIZZINESS [None]
  - PRODUCT SUBSTITUTION ISSUE [None]
